FAERS Safety Report 13286449 (Version 1)
Quarter: 2017Q1

REPORT INFORMATION
  Report Type: Spontaneous
  Country: US (occurrence: US)
  Receive Date: 20170302
  Receipt Date: 20170302
  Transmission Date: 20170428
  Serious: No
  Sender: FDA-Public Use
  Company Number: US-CELGENEUS-USA-2017027917

PATIENT
  Age: 64 Year
  Sex: Male
  Weight: 73 kg

DRUGS (3)
  1. REVLIMID [Suspect]
     Active Substance: LENALIDOMIDE
     Indication: MYELOFIBROSIS
     Dosage: 10MG DAILY ONE
     Route: 048
     Dates: start: 201007
  2. REVLIMID [Suspect]
     Active Substance: LENALIDOMIDE
     Route: 048
     Dates: start: 201011
  3. REVLIMID [Suspect]
     Active Substance: LENALIDOMIDE
     Dosage: 25MG DAILY ONE
     Route: 048
     Dates: start: 201010

REACTIONS (5)
  - Myelofibrosis [Unknown]
  - Discomfort [Unknown]
  - Renal pain [Unknown]
  - Myalgia [Unknown]
  - Arthralgia [Unknown]

NARRATIVE: CASE EVENT DATE: 20170201
